FAERS Safety Report 18272491 (Version 2)
Quarter: 2020Q3

REPORT INFORMATION
  Report Type: Spontaneous
  Country: IT (occurrence: IT)
  Receive Date: 20200916
  Receipt Date: 20200921
  Transmission Date: 20201103
  Serious: Yes (Hospitalization)
  Sender: FDA-Public Use
  Company Number: IT-ACCORD-201218

PATIENT
  Age: 47 Year
  Sex: Female

DRUGS (2)
  1. LEVEMIR [Concomitant]
     Active Substance: INSULIN DETEMIR
     Indication: DIABETES MELLITUS
     Route: 058
  2. DOCETAXEL ACCORD [Suspect]
     Active Substance: DOCETAXEL
     Indication: LUNG ADENOCARCINOMA STAGE IV
     Route: 042
     Dates: start: 20200820

REACTIONS (6)
  - Retching [Recovering/Resolving]
  - Pyrexia [Recovering/Resolving]
  - Hyperhidrosis [Recovering/Resolving]
  - Myalgia [Recovering/Resolving]
  - Neutropenia [Recovering/Resolving]
  - Nausea [Recovering/Resolving]

NARRATIVE: CASE EVENT DATE: 20200828
